FAERS Safety Report 9118360 (Version 1)
Quarter: 2013Q1

REPORT INFORMATION
  Report Type: Spontaneous
  Country: US (occurrence: None)
  Receive Date: 20130221
  Receipt Date: 20130221
  Transmission Date: 20140127
  Serious: Yes (Hospitalization)
  Sender: FDA-Public Use
  Company Number: None

PATIENT
  Age: 71 Year
  Sex: Female
  Weight: 81.4 kg

DRUGS (7)
  1. XARELTO (RIVAROXABAN) [Suspect]
     Indication: KNEE ARTHROPLASTY
     Route: 048
     Dates: start: 20130205, end: 20130208
  2. LOVASTATIN [Concomitant]
  3. ATORVASTATIN [Concomitant]
  4. STATIN [Concomitant]
  5. DYAZIDE [Concomitant]
  6. TYLENOL [Concomitant]
  7. # 40 TYLENOL # 3 [Concomitant]

REACTIONS (2)
  - Liver function test abnormal [None]
  - Renal failure acute [None]
